FAERS Safety Report 4717993-5 (Version None)
Quarter: 2005Q3

REPORT INFORMATION
  Report Type: 
  Country: None (occurrence: None)
  Receive Date: 20050718
  Receipt Date: 20050223
  Transmission Date: 20060218
  Serious: No
  Sender: FDA-Public Use
  Company Number: 2005000450

PATIENT
  Age: 43 Year
  Sex: Female

DRUGS (1)
  1. TARCEVA [Suspect]
     Indication: NON-SMALL CELL LUNG CANCER METASTATIC
     Dosage: 150 MG (QD), ORAL
     Route: 048
     Dates: start: 20050108

REACTIONS (6)
  - CONJUNCTIVITIS [None]
  - DEPRESSION [None]
  - DIARRHOEA [None]
  - EYE IRRITATION [None]
  - FATIGUE [None]
  - RASH [None]
